FAERS Safety Report 7981716-7 (Version None)
Quarter: 2011Q4

REPORT INFORMATION
  Report Type: 
  Country: None (occurrence: None)
  Receive Date: 20111213
  Receipt Date: 20111128
  Transmission Date: 20120403
  Serious: Yes (Other)
  Sender: FDA-Public Use
  Company Number: IMP_05470_2011

PATIENT
  Age: 59 Year
  Sex: Female
  Weight: 40 kg

DRUGS (2)
  1. CHLOROQUINE PHOSPHATE [Suspect]
     Indication: CUTANEOUS LUPUS ERYTHEMATOSUS
     Dosage: DAILY DOSE 300 MG
  2. PREDNISONE [Concomitant]

REACTIONS (19)
  - ARTHRALGIA [None]
  - ATRIOVENTRICULAR BLOCK COMPLETE [None]
  - VENTRICULAR HYPERTROPHY [None]
  - MYOPATHY [None]
  - ISCHAEMIC CARDIOMYOPATHY [None]
  - TROPONIN INCREASED [None]
  - CORONARY ARTERY OCCLUSION [None]
  - ACUTE MYOCARDIAL INFARCTION [None]
  - EJECTION FRACTION DECREASED [None]
  - AREFLEXIA [None]
  - POLYNEUROPATHY [None]
  - BUNDLE BRANCH BLOCK LEFT [None]
  - TOXICITY TO VARIOUS AGENTS [None]
  - DYSPNOEA [None]
  - CARDIAC FAILURE CONGESTIVE [None]
  - CARDIO-RESPIRATORY ARREST [None]
  - AMYLOIDOSIS [None]
  - MUSCULAR WEAKNESS [None]
  - CUTANEOUS LUPUS ERYTHEMATOSUS [None]
